FAERS Safety Report 9517530 (Version 2)
Quarter: 2013Q3

REPORT INFORMATION
  Report Type: Spontaneous
  Country: US (occurrence: US)
  Receive Date: 20130911
  Receipt Date: 20130911
  Transmission Date: 20140515
  Serious: Yes (Hospitalization)
  Sender: FDA-Public Use
  Company Number: US-TMC-CABO-13002830

PATIENT
  Age: 15 Year
  Sex: Female
  Weight: 47.4 kg

DRUGS (10)
  1. COMETRIQ [Suspect]
     Indication: BONE CANCER
     Dosage: 80 MG, QD
     Route: 048
     Dates: start: 20130514, end: 20130527
  2. COMETRIQ [Suspect]
     Dosage: 80 MG, QD
     Route: 048
     Dates: start: 20130530, end: 20130606
  3. COMETRIQ [Suspect]
     Dosage: 60 MG, QD
     Route: 048
     Dates: start: 20130607, end: 20130610
  4. COMETRIQ [Suspect]
     Dosage: 40 MG, QD
     Route: 048
     Dates: start: 20130616, end: 20130619
  5. AFINITOR [Suspect]
     Indication: BONE CANCER
     Dosage: UNK
     Dates: start: 20130521
  6. LORAZEPAM [Concomitant]
  7. LEXAPRO [Concomitant]
  8. CELEBREX [Concomitant]
  9. CALCIUM [Concomitant]
  10. VITAMIN D [Concomitant]

REACTIONS (4)
  - Campylobacter infection [Recovered/Resolved]
  - Diarrhoea [Recovered/Resolved]
  - Dehydration [Recovered/Resolved]
  - Platelet count decreased [Recovered/Resolved]
